FAERS Safety Report 14250184 (Version 1)
Quarter: 2017Q4

REPORT INFORMATION
  Report Type: Report from Study
  Country: GB (occurrence: GB)
  Receive Date: 20171205
  Receipt Date: 20171205
  Transmission Date: 20180321
  Serious: Yes (Death)
  Sender: FDA-Public Use
  Company Number: GB-ROCHE-2030684

PATIENT

DRUGS (9)
  1. THIOTEPA. [Suspect]
     Active Substance: THIOTEPA
     Indication: CENTRAL NERVOUS SYSTEM LYMPHOMA
     Route: 065
  2. BUSULPHAN [Suspect]
     Active Substance: BUSULFAN
     Indication: CENTRAL NERVOUS SYSTEM LYMPHOMA
     Dosage: 6.4 MG/KG IN 67 PATIENTS AND 9.6 MG/KG IN 2 PATIENTS
     Route: 065
  3. LOMUSTINE. [Suspect]
     Active Substance: LOMUSTINE
     Indication: CENTRAL NERVOUS SYSTEM LYMPHOMA
     Route: 065
  4. METHOTREXATE. [Suspect]
     Active Substance: METHOTREXATE
     Indication: CENTRAL NERVOUS SYSTEM LYMPHOMA
     Route: 065
  5. CYTARABINE. [Suspect]
     Active Substance: CYTARABINE
     Indication: CENTRAL NERVOUS SYSTEM LYMPHOMA
     Route: 065
  6. ETOPOSIDE. [Suspect]
     Active Substance: ETOPOSIDE
     Indication: CENTRAL NERVOUS SYSTEM LYMPHOMA
     Route: 065
  7. CARMUSTINE [Suspect]
     Active Substance: CARMUSTINE
     Indication: CENTRAL NERVOUS SYSTEM LYMPHOMA
     Route: 065
  8. RITUXIMAB. [Suspect]
     Active Substance: RITUXIMAB
     Indication: CENTRAL NERVOUS SYSTEM LYMPHOMA
     Route: 065
  9. IFOSFAMIDE. [Suspect]
     Active Substance: IFOSFAMIDE
     Indication: CENTRAL NERVOUS SYSTEM LYMPHOMA
     Route: 065

REACTIONS (3)
  - Neutropenic sepsis [Fatal]
  - Acute respiratory distress syndrome [Fatal]
  - Neurotoxicity [Fatal]
